FAERS Safety Report 6406724-9 (Version None)
Quarter: 2009Q4

REPORT INFORMATION
  Report Type: 
  Country: None (occurrence: None)
  Receive Date: 20091020
  Receipt Date: 20091012
  Transmission Date: 20100525
  Serious: No
  Sender: FDA-Public Use
  Company Number: US-B.I. PHARMACEUTICALS,INC./RIDGEFIELD-2009-BP-11944BP

PATIENT
  Sex: Female

DRUGS (7)
  1. SPIRIVA [Suspect]
     Indication: CHRONIC OBSTRUCTIVE PULMONARY DISEASE
     Dosage: 18 MCG
     Route: 055
     Dates: start: 20090201
  2. SPIRIVA [Suspect]
     Dosage: 18 MCG
     Route: 055
     Dates: start: 20090401
  3. SIMVASTATIN [Concomitant]
     Indication: BLOOD CHOLESTEROL INCREASED
  4. LISINOPRIL [Concomitant]
     Indication: HYPERTENSION
  5. PRILOSEC [Concomitant]
     Indication: GASTROOESOPHAGEAL REFLUX DISEASE
  6. OMNARIS [Concomitant]
     Indication: SINUS DISORDER
  7. OMNARIS [Concomitant]
     Indication: MULTIPLE ALLERGIES

REACTIONS (2)
  - DRY MOUTH [None]
  - VISION BLURRED [None]
